FAERS Safety Report 9617028 (Version 3)
Quarter: 2013Q4

REPORT INFORMATION
  Report Type: Report from Study
  Country: BR (occurrence: BR)
  Receive Date: 20131011
  Receipt Date: 20131016
  Transmission Date: 20140711
  Serious: Yes (Other)
  Sender: FDA-Public Use
  Company Number: PHHY2013BR103087

PATIENT
  Sex: Female

DRUGS (9)
  1. FORASEQ [Suspect]
     Indication: ASTHMA
     Dosage: 1 DF, BID
     Dates: start: 200506, end: 20130910
  2. FORASEQ [Suspect]
     Indication: PULMONARY OEDEMA
     Dosage: UNK UKN, UNK
  3. FORASEQ [Suspect]
     Indication: OFF LABEL USE
  4. XOLAIR [Suspect]
     Indication: BRONCHITIS
     Dosage: UNK UKN, UNK
  5. XOLAIR [Suspect]
     Indication: ASTHMA
  6. BUDESONIDE [Suspect]
     Indication: ASTHMA
     Dosage: 400 UG, BID
     Dates: start: 20130910
  7. BUDESONIDE [Suspect]
     Indication: PULMONARY OEDEMA
  8. ALENIA /01538101/ [Suspect]
     Indication: ASTHMA
     Dosage: 1 DF, BID
     Dates: start: 20130910
  9. ALENIA /01538101/ [Suspect]
     Indication: PULMONARY OEDEMA

REACTIONS (4)
  - Pneumonia [Not Recovered/Not Resolved]
  - Malaise [Recovering/Resolving]
  - Dyspnoea [Recovering/Resolving]
  - Nasopharyngitis [Recovering/Resolving]
